FAERS Safety Report 19028410 (Version 1)
Quarter: 2021Q1

REPORT INFORMATION
  Report Type: Spontaneous
  Country: US (occurrence: US)
  Receive Date: 20210318
  Receipt Date: 20210318
  Transmission Date: 20210420
  Serious: No
  Sender: FDA-Public Use
  Company Number: US-SCILEX PHARMACEUTICALS INC.-2021SCX00005

PATIENT
  Age: 48 Year
  Sex: Female
  Weight: 70.3 kg

DRUGS (6)
  1. PROGESTERONE. [Concomitant]
     Active Substance: PROGESTERONE
  2. ZTLIDO [Suspect]
     Active Substance: LIDOCAINE
     Dosage: 1?2 PATCHES; APPLIED TO INTACT, DRY SKIN, 1?2 PATCHES ON FOR 12 HOURS AND OFF FOR 12 HOURS
     Route: 062
     Dates: start: 20210203
  3. LEVOTHYROXINE. [Concomitant]
     Active Substance: LEVOTHYROXINE
  4. ZTLIDO [Suspect]
     Active Substance: LIDOCAINE
     Indication: NEURALGIA
     Dosage: 1?2 PATCHES; APPLIED TO INTACT, DRY SKIN, 1?2 PATCHES ON FOR 12 HOURS AND OFF FOR 12 HOURS
     Route: 062
     Dates: start: 20210203
  5. DIAMOX SEQUELS [Concomitant]
     Active Substance: ACETAZOLAMIDE
  6. HYDROCODONE [Concomitant]
     Active Substance: HYDROCODONE

REACTIONS (2)
  - Product adhesion issue [Recovered/Resolved]
  - Hyperhidrosis [Recovered/Resolved]

NARRATIVE: CASE EVENT DATE: 20210203
